FAERS Safety Report 4559485-2 (Version None)
Quarter: 2005Q1

REPORT INFORMATION
  Report Type: 
  Country: None (occurrence: None)
  Receive Date: 20050119
  Receipt Date: 20050110
  Transmission Date: 20050727
  Serious: Yes (Hospitalization)
  Sender: FDA-Public Use
  Company Number: 2005009963

PATIENT
  Age: 74 Year
  Sex: Male

DRUGS (1)
  1. DOXAZOSIN MESYLATE [Suspect]
     Indication: ILL-DEFINED DISORDER
     Dosage: 1 DF DAILY, ORAL
     Route: 048

REACTIONS (12)
  - CREPITATIONS [None]
  - HAEMOGLOBIN DECREASED [None]
  - HEART SOUNDS ABNORMAL [None]
  - HEPATOJUGULAR REFLUX [None]
  - OEDEMA PERIPHERAL [None]
  - PETECHIAE [None]
  - PLATELET COUNT DECREASED [None]
  - PURPURA [None]
  - RASH PAPULAR [None]
  - RASH VESICULAR [None]
  - RENAL FAILURE [None]
  - WHITE BLOOD CELL COUNT DECREASED [None]
